FAERS Safety Report 9361756 (Version 2)
Quarter: 2013Q3

REPORT INFORMATION
  Report Type: Spontaneous
  Country: IT (occurrence: IT)
  Receive Date: 20130621
  Receipt Date: 20130729
  Transmission Date: 20140515
  Serious: Yes (Hospitalization)
  Sender: FDA-Public Use
  Company Number: IT-BRISTOL-MYERS SQUIBB COMPANY-19011410

PATIENT
  Age: 60 Year
  Sex: Male
  Weight: 82 kg

DRUGS (2)
  1. YERVOY [Suspect]
     Indication: METASTATIC MALIGNANT MELANOMA
     Dosage: FORMULATION-YERVOY 5 MG/ML INF SOL?LAST DOSE-27MAY13
     Route: 042
     Dates: start: 20130517
  2. ARIXTRA [Concomitant]
     Indication: PULMONARY EMBOLISM
     Dosage: FORMULATION-7.5MG/0.6ML INJECTION SOLUTION?LAST DOSE-27MAY2013
     Route: 058
     Dates: start: 20130306

REACTIONS (4)
  - Hypertransaminasaemia [Recovering/Resolving]
  - Pneumonia [Recovering/Resolving]
  - Pruritus [Recovering/Resolving]
  - Rash [Recovering/Resolving]
